FAERS Safety Report 7741221-X (Version None)
Quarter: 2011Q3

REPORT INFORMATION
  Report Type: 
  Country: None (occurrence: None)
  Receive Date: 20110909
  Receipt Date: 20110902
  Transmission Date: 20111222
  Serious: Yes (Other)
  Sender: FDA-Public Use
  Company Number: US-SANOFI-AVENTIS-2011SA057764

PATIENT
  Age: 43 Year
  Sex: Male

DRUGS (11)
  1. HYDROCORTISONE [Concomitant]
  2. TENOFOVIR [Concomitant]
  3. VALTREX [Concomitant]
  4. CELEBREX [Concomitant]
  5. ANDROGEL [Concomitant]
  6. EMTRICITABINE [Concomitant]
  7. HYDROCODONE BITARTRATE [Concomitant]
  8. AMBIEN [Suspect]
     Route: 048
     Dates: start: 19940101
  9. ANTIVIRALS FOR SYSTEMIC USE [Concomitant]
  10. AMBIEN [Suspect]
     Route: 048
     Dates: start: 20010101
  11. PROVIGIL [Concomitant]

REACTIONS (3)
  - ACQUIRED IMMUNODEFICIENCY SYNDROME [None]
  - HEPATITIS [None]
  - WITHDRAWAL SYNDROME [None]
